FAERS Safety Report 9396818 (Version 1)
Quarter: 2013Q3

REPORT INFORMATION
  Report Type: Spontaneous
  Country: US (occurrence: None)
  Receive Date: 20130710
  Receipt Date: 20130710
  Transmission Date: 20140515
  Serious: Yes (Hospitalization)
  Sender: FDA-Public Use
  Company Number: None

PATIENT
  Age: 58 None
  Sex: Male
  Weight: 70.3 kg

DRUGS (2)
  1. SULINDAC [Suspect]
     Dosage: 200 MG BID PO
     Route: 048
     Dates: start: 20130329, end: 20130410
  2. LISINOPRIL [Suspect]
     Dosage: 40 MG  EVERY DAY  PO
     Route: 048
     Dates: start: 20010222, end: 20130410

REACTIONS (1)
  - Angioedema [None]
